FAERS Safety Report 9229368 (Version 1)
Quarter: 2013Q2

REPORT INFORMATION
  Report Type: Spontaneous
  Country: US (occurrence: US)
  Receive Date: 20130412
  Receipt Date: 20130412
  Transmission Date: 20140414
  Serious: Yes (Death, Other)
  Sender: FDA-Public Use
  Company Number: US-ASTELLAS-2013US000840

PATIENT
  Sex: Male

DRUGS (2)
  1. PROGRAF [Suspect]
     Indication: RENAL TRANSPLANT
     Dosage: 5 MG, 3 DAYS A WEEK
     Route: 048
     Dates: start: 20101216, end: 20130112
  2. PROGRAF [Suspect]
     Dosage: 4 MG, 4 DAYS A WEEK
     Route: 048
     Dates: start: 20101216, end: 20130112

REACTIONS (3)
  - Pneumonia [Fatal]
  - Influenza [Fatal]
  - Immunosuppression [Unknown]
